FAERS Safety Report 6438992-1 (Version None)
Quarter: 2009Q4

REPORT INFORMATION
  Report Type: 
  Country: None (occurrence: None)
  Receive Date: 20091113
  Receipt Date: 20091104
  Transmission Date: 20100525
  Serious: Yes (Hospitalization)
  Sender: FDA-Public Use
  Company Number: US-ROCHE-667217

PATIENT
  Sex: Male
  Weight: 80 kg

DRUGS (10)
  1. PEG-INTERFERON ALFA 2A (RO 25-8310) [Suspect]
     Route: 058
     Dates: start: 20090220, end: 20091029
  2. RIBAVIRIN [Suspect]
     Dosage: FORM: PILL.
     Route: 048
     Dates: start: 20090220, end: 20091029
  3. NORCO [Concomitant]
     Dosage: TDD REPORTED AS 10/325 MG
     Dates: start: 20090320
  4. ZOLOFT [Concomitant]
  5. KLONOPIN [Concomitant]
  6. PROPRANOLOL [Concomitant]
  7. INSULIN [Concomitant]
     Dosage: LANTUS INSULIN
  8. METFORMIN HCL [Concomitant]
  9. SEROQUEL [Concomitant]
  10. MECLIZINE [Concomitant]

REACTIONS (1)
  - EPISTAXIS [None]
